FAERS Safety Report 8603965 (Version 2)
Quarter: 2013Q3

REPORT INFORMATION
  Report Type: Spontaneous
  Country: US (occurrence: US)
  Receive Date: 20120608
  Receipt Date: 20130912
  Transmission Date: 20140515
  Serious: No
  Sender: FDA-Public Use
  Company Number: US-ASTRAZENECA-2012SE35032

PATIENT
  Age: 55 Year
  Sex: Male

DRUGS (9)
  1. NEXIUM [Suspect]
     Indication: GASTROOESOPHAGEAL REFLUX DISEASE
     Route: 048
  2. NEXIUM [Suspect]
     Indication: GASTROOESOPHAGEAL REFLUX DISEASE
     Dosage: 1 A DAY
     Route: 048
  3. PRILOSEC [Suspect]
     Route: 048
  4. PANTOPRAZOLE [Concomitant]
     Dates: start: 20121015
  5. ONDANSETRON HCL [Concomitant]
     Dates: start: 20121015
  6. DOXYCYCLINE HYCLATE [Concomitant]
     Dates: start: 20130131
  7. TUMS [Concomitant]
  8. ROLAIDS [Concomitant]
  9. PEPTO BISMOL [Concomitant]
     Dosage: SOMETIMES DAILY SOMETIMES WEEKLY FOR OVER 15 YEARS

REACTIONS (3)
  - Osteoporosis [Unknown]
  - Multiple fractures [Unknown]
  - Bone disorder [Unknown]
